FAERS Safety Report 24599176 (Version 3)
Quarter: 2025Q2

REPORT INFORMATION
  Report Type: Spontaneous
  Country: US (occurrence: US)
  Receive Date: 20241110
  Receipt Date: 20250404
  Transmission Date: 20250716
  Serious: No
  Sender: SANOFI AVENTIS
  Company Number: US-SANOFI-02277386

PATIENT
  Age: 9 Year
  Sex: Male
  Weight: 27.2 kg

DRUGS (2)
  1. DUPIXENT [Suspect]
     Active Substance: DUPILUMAB
     Indication: Dermatitis atopic
     Route: 065
     Dates: start: 20240530, end: 20240530
  2. DUPIXENT [Suspect]
     Active Substance: DUPILUMAB
     Dosage: 200 MG, QOW
     Route: 065

REACTIONS (3)
  - Incorrect dose administered [Unknown]
  - Accidental exposure to product [Unknown]
  - Exposure via skin contact [Unknown]

NARRATIVE: CASE EVENT DATE: 20240530
